FAERS Safety Report 8624567-2 (Version None)
Quarter: 2012Q3

REPORT INFORMATION
  Report Type: 
  Country: None (occurrence: None)
  Receive Date: 20120827
  Receipt Date: 20120822
  Transmission Date: 20120928
  Serious: Yes (Hospitalization)
  Sender: FDA-Public Use
  Company Number: US-JNJFOC-20120811266

PATIENT
  Age: 13 Year
  Sex: Male

DRUGS (5)
  1. BENADRYL [Concomitant]
     Indication: PREMEDICATION
     Route: 065
     Dates: start: 20120101
  2. ACETAMINOPHEN [Concomitant]
     Indication: PREMEDICATION
     Route: 065
     Dates: start: 20120101
  3. STEROIDS NOS [Concomitant]
     Indication: PREMEDICATION
     Route: 065
     Dates: start: 20120101
  4. REMICADE [Suspect]
     Indication: CROHN'S DISEASE
     Route: 042
     Dates: start: 20120601
  5. REMICADE [Suspect]
     Route: 042
     Dates: start: 20120101

REACTIONS (3)
  - RESPIRATORY DISORDER [None]
  - DYSPNOEA [None]
  - CROHN'S DISEASE [None]
